FAERS Safety Report 6372437-5 (Version None)
Quarter: 2009Q3

REPORT INFORMATION
  Report Type: 
  Country: None (occurrence: None)
  Receive Date: 20090924
  Receipt Date: 20080722
  Transmission Date: 20100115
  Serious: No
  Sender: FDA-Public Use
  Company Number: BR-ASTRAZENECA-2008UW14758

PATIENT
  Age: 34 Year
  Sex: Female

DRUGS (7)
  1. SEROQUEL [Suspect]
     Indication: BIPOLAR DISORDER
     Route: 048
     Dates: start: 20080601, end: 20080703
  2. TRILEPTAL [Concomitant]
     Indication: BIPOLAR DISORDER
     Route: 048
     Dates: end: 20080703
  3. LAMOTRIGINE [Concomitant]
     Indication: BIPOLAR DISORDER
     Route: 048
     Dates: end: 20080703
  4. RIVOTRIL [Concomitant]
     Indication: BIPOLAR DISORDER
     Route: 048
     Dates: end: 20080703
  5. RIVOTRIL [Concomitant]
     Indication: INSOMNIA
     Route: 048
     Dates: end: 20080703
  6. RIVOTRIL [Concomitant]
     Route: 048
     Dates: start: 20080708
  7. RIVOTRIL [Concomitant]
     Route: 048
     Dates: start: 20080708

REACTIONS (5)
  - BALANCE DISORDER [None]
  - DRUG EXPOSURE DURING PREGNANCY [None]
  - DYSPHONIA [None]
  - HYPERHIDROSIS [None]
  - INSOMNIA [None]
